FAERS Safety Report 15990459 (Version 1)
Quarter: 2019Q1

REPORT INFORMATION
  Report Type: Spontaneous
  Country: US (occurrence: US)
  Receive Date: 20190221
  Receipt Date: 20190221
  Transmission Date: 20190418
  Serious: Yes (Life-Threatening, Hospitalization, Other)
  Sender: FDA-Public Use
  Company Number: US-PFIZER INC-2019071181

PATIENT
  Age: 60 Year
  Sex: Male

DRUGS (1)
  1. CEFEPIME HCL [Suspect]
     Active Substance: CEFEPIME HYDROCHLORIDE
     Indication: OSTEOMYELITIS
     Dosage: 2 G, 3X/DAY
     Route: 042

REACTIONS (3)
  - Toxic encephalopathy [Recovering/Resolving]
  - Acute kidney injury [Unknown]
  - Renal tubular necrosis [Unknown]
